FAERS Safety Report 5694153-5 (Version None)
Quarter: 2008Q2

REPORT INFORMATION
  Report Type: 
  Country: None (occurrence: None)
  Receive Date: 20080402
  Receipt Date: 20080321
  Transmission Date: 20081010
  Serious: Yes (Hospitalization)
  Sender: FDA-Public Use
  Company Number: 2008S1004996

PATIENT
  Age: 60 Year
  Sex: Female
  Weight: 127.0072 kg

DRUGS (13)
  1. FENTANYL TRANSDERMAL SYSTEM [Suspect]
     Indication: ARTHRITIS
     Dosage: 50 UG; EVERY HOUR; TRANSDERMAL
     Route: 062
     Dates: start: 20080201, end: 20080301
  2. FENTANYL TRANSDERMAL SYSTEM [Suspect]
     Indication: PAIN
     Dosage: 50 UG; EVERY HOUR; TRANSDERMAL
     Route: 062
     Dates: start: 20080201, end: 20080301
  3. ALLOPURINOL [Concomitant]
  4. RAMIPRIL [Concomitant]
  5. BYETTA [Concomitant]
  6. FUROSEMIDE [Concomitant]
  7. GLYBURIDE [Concomitant]
  8. ATORVASTATIN [Concomitant]
  9. METFORMIN HCL [Concomitant]
  10. MICARDIS [Concomitant]
  11. MIRAPEX [Concomitant]
  12. GLYCERYL TRINITRATE [Concomitant]
  13. ZETIA [Concomitant]

REACTIONS (1)
  - GASTROINTESTINAL HAEMORRHAGE [None]
